FAERS Safety Report 20980009 (Version 1)
Quarter: 2022Q2

REPORT INFORMATION
  Report Type: Spontaneous
  Country: DE (occurrence: DE)
  Receive Date: 20220620
  Receipt Date: 20220620
  Transmission Date: 20220721
  Serious: Yes (Other)
  Sender: FDA-Public Use
  Company Number: DE-PROCTER+GAMBLE-PH22004874

PATIENT
  Age: 39 Year
  Sex: Female

DRUGS (9)
  1. LAMOTRIGINE [Suspect]
     Active Substance: LAMOTRIGINE
     Indication: Product used for unknown indication
     Dosage: 1 DOSAGE FORM (1 TABLET ((MIX-UP), ORAL, CERTAIN EXPOSURE)
     Route: 048
     Dates: start: 20220508
  2. LAMOTRIGINE [Suspect]
     Active Substance: LAMOTRIGINE
     Indication: Product used for unknown indication
     Dosage: 1 DOSAGE FORM (1 TABLET ((MIX-UP), ORAL, CERTAIN EXPOSURE))
     Route: 048
     Dates: start: 20220508
  3. LEVETIRACETAM [Suspect]
     Active Substance: LEVETIRACETAM
     Indication: Product used for unknown indication
     Dosage: 1 DOSAGE FORM (1 TABLET (MIX-UP), ORAL, CERTAIN EXPOSURE)
     Route: 048
     Dates: start: 20220508
  4. CHOLECALCIFEROL [Suspect]
     Active Substance: CHOLECALCIFEROL
     Indication: Product used for unknown indication
     Dosage: 1 DOSAGE FORM
     Route: 048
     Dates: start: 20220508
  5. MAGNESIUM [Suspect]
     Active Substance: MAGNESIUM
     Indication: Product used for unknown indication
     Dosage: 1 DOSAGE FORM (1 TABLET (MIX-UP), ORAL, CERTAIN EXPOSURE)
     Route: 048
     Dates: start: 20220508
  6. BACLOFEN [Concomitant]
     Active Substance: BACLOFEN
     Indication: Product used for unknown indication
     Dosage: 2 DOSAGE FORM (2 TABLET (LONG-TERM MEDICATION), ORAL, NO EXPOSURE)
     Route: 048
  7. CARBAMAZEPINE [Concomitant]
     Active Substance: CARBAMAZEPINE
     Indication: Product used for unknown indication
     Dosage: 1 DOSAGE FORM (1 TABLET (LONG-TERM MEDICATION), ORAL, NO EXPOSURE)
     Route: 048
  8. LEVETIRACETAM [Concomitant]
     Active Substance: LEVETIRACETAM
     Indication: Product used for unknown indication
     Dosage: 1 DOSAGE FORM (1 TABLET (LONG-TERM MEDICATION), ORAL, NO EXPOSURE)
     Route: 048
  9. CITALOPRAM [Concomitant]
     Active Substance: CITALOPRAM HYDROBROMIDE
     Indication: Product used for unknown indication
     Dosage: 1 DOSAGE FORM (1 TABLET (LONG-TERM MEDICATION), ORAL, NO EXPOSURE)
     Route: 048

REACTIONS (2)
  - Diastolic hypertension [Unknown]
  - Wrong product administered [Unknown]

NARRATIVE: CASE EVENT DATE: 20220508
